FAERS Safety Report 8406936-9 (Version None)
Quarter: 2012Q2

REPORT INFORMATION
  Report Type: 
  Country: None (occurrence: None)
  Receive Date: 20120529
  Receipt Date: 20120529
  Transmission Date: 20120825
  Serious: No
  Sender: FDA-Public Use
  Company Number: 2012SP025559

PATIENT
  Sex: Female

DRUGS (1)
  1. CEFTIBUTEN (CEFTIBUTEN) [Suspect]
     Indication: PRODUCT USED FOR UNKNOWN INDICATION

REACTIONS (1)
  - MATERNAL EXPOSURE DURING PREGNANCY [None]
